FAERS Safety Report 5523682-X (Version None)
Quarter: 2007Q4

REPORT INFORMATION
  Report Type: 
  Country: None (occurrence: None)
  Receive Date: 20071121
  Receipt Date: 20071115
  Transmission Date: 20080405
  Serious: Yes (Other)
  Sender: FDA-Public Use
  Company Number: US-JNJFOC-20071106114

PATIENT
  Age: 3 Year
  Sex: Female
  Weight: 13.61 kg

DRUGS (2)
  1. TYLENOL [Suspect]
     Indication: NASOPHARYNGITIS
     Route: 048
  2. TYLENOL [Suspect]
     Indication: PYREXIA
     Route: 048

REACTIONS (1)
  - CONVULSION [None]
